FAERS Safety Report 11567524 (Version 1)
Quarter: 2015Q3

REPORT INFORMATION
  Report Type: Spontaneous
  Country: AR (occurrence: None)
  Receive Date: 20150925
  Receipt Date: 20150925
  Transmission Date: 20151125
  Serious: Yes (Other)
  Sender: FDA-Public Use
  Company Number: 2015HINCT 0685

PATIENT
  Age: 38 Year
  Sex: Female

DRUGS (5)
  1. RITONAVIR (RITONAVIR) [Suspect]
     Active Substance: RITONAVIR
     Indication: HIV INFECTION
     Route: 048
     Dates: start: 20110516, end: 20140721
  2. LOPINAVIR+RITONAVIR (LOPINAVIR+RITONAVIR) [Suspect]
     Active Substance: LOPINAVIR\RITONAVIR
     Indication: HIV INFECTION
     Route: 048
     Dates: start: 20140721
  3. MARAVIROC (MARAVIROC) [Suspect]
     Active Substance: MARAVIROC
     Indication: HIV INFECTION
     Route: 048
     Dates: start: 20130425, end: 20140721
  4. ATAZANAVIR SULFATE (ATAZANAVIR SULFATE) [Suspect]
     Active Substance: ATAZANAVIR SULFATE
     Indication: HIV INFECTION
     Route: 048
     Dates: start: 20110516, end: 20140721
  5. LAMIVUDINE + ZIDOVUDINE (LAMIVUDINE, ZIDOVUDINE) UNKNOWN [Suspect]
     Active Substance: LAMIVUDINE\ZIDOVUDINE
     Indication: HIV INFECTION
     Route: 048
     Dates: start: 20140721

REACTIONS (3)
  - Pregnancy [None]
  - Abortion spontaneous [None]
  - Maternal exposure during pregnancy [None]
